FAERS Safety Report 4326731-X (Version None)
Quarter: 2004Q1

REPORT INFORMATION
  Report Type: 
  Country: None (occurrence: None)
  Receive Date: 20040325
  Receipt Date: 20040308
  Transmission Date: 20041129
  Serious: Yes (Hospitalization, Other)
  Sender: FDA-Public Use
  Company Number: USA030844672

PATIENT
  Age: 69 Year
  Sex: Female
  Weight: 79 kg

DRUGS (7)
  1. FORTEO [Suspect]
     Indication: OSTEOPOROSIS
     Dosage: 20 UG/DAY
     Dates: start: 20030707, end: 20040101
  2. DETROL LA (TOLTERODINE L-TARTRATE) [Concomitant]
  3. DECONGESTANT [Concomitant]
  4. ZOCOR [Concomitant]
  5. ASPIRIN [Concomitant]
  6. CALCIUM WITH VITAMIN D [Concomitant]
  7. PRILOSEC [Concomitant]

REACTIONS (7)
  - CARDIAC OPERATION [None]
  - CHEST DISCOMFORT [None]
  - EAR INFECTION [None]
  - PAIN IN EXTREMITY [None]
  - PRURITUS [None]
  - RASH PRURITIC [None]
  - STENT OCCLUSION [None]
